FAERS Safety Report 5343421-5 (Version None)
Quarter: 2007Q2

REPORT INFORMATION
  Report Type: 
  Country: None (occurrence: None)
  Receive Date: 20070531
  Receipt Date: 20070517
  Transmission Date: 20071010
  Serious: Yes (Hospitalization)
  Sender: FDA-Public Use
  Company Number: 156591USA

PATIENT
  Sex: Female

DRUGS (8)
  1. PIMOZIDE TABLETS (PIMOZIDE) [Suspect]
     Indication: PSYCHOTIC DISORDER
     Dosage: 4 MG (4 MG, 1 IN- 2), ORAL
     Route: 048
  2. CLOMIPRAMINE HYDROCHLORIDE [Suspect]
     Indication: PSYCHOTIC DISORDER
     Dosage: 20 MG (20 MG, 1-
  3. TAMOXIFEN CITRATE [Suspect]
     Indication: BREAST CANCER
     Dosage: (1 IN 1 D) ORAL
     Route: 048
     Dates: start: 20070224
  4. NORFLOXACIN [Suspect]
     Dates: start: 20070223, end: 20070226
  5. ACENOCOUMAROL [Suspect]
     Indication: ATRIAL FIBRILLATION
     Dosage: (2 IN 1 D)
  6. AMIODARONE HCL [Suspect]
     Indication: ATRIAL FIBRILLATION
     Dosage: 200 MG (200 MG,1 IN 1 D)
  7. DIGOXIN [Concomitant]
  8. TROPATEPINE HYDROCHLORIDE [Concomitant]

REACTIONS (4)
  - PETECHIAE [None]
  - RASH MACULO-PAPULAR [None]
  - SKIN EXFOLIATION [None]
  - TOXIC SKIN ERUPTION [None]
